FAERS Safety Report 7481072-7 (Version None)
Quarter: 2011Q2

REPORT INFORMATION
  Report Type: 
  Country: None (occurrence: None)
  Receive Date: 20110516
  Receipt Date: 20080926
  Transmission Date: 20111010
  Serious: Yes (Death, Hospitalization, Other)
  Sender: FDA-Public Use
  Company Number: US-BAYER-200834506NA

PATIENT
  Age: 76 Year
  Sex: Female
  Weight: 50.34 kg

DRUGS (18)
  1. LOPRIL [CAPTOPRIL] [Concomitant]
     Dosage: ONE TABLET
     Route: 048
  2. LEVALBUTEROL HYDROCHLORIDE [Concomitant]
     Dosage: UNK
     Dates: start: 20050623
  3. IBUPROFEN [Concomitant]
  4. BACITRACIN W/NEOMYCIN/POLYMIXIN [Concomitant]
     Dosage: UNK
     Dates: start: 20050623
  5. LASIX [Concomitant]
     Dosage: ONE TABLET
     Route: 048
  6. ENALAPRIL [Concomitant]
     Dosage: 20 MG, QD
     Route: 048
  7. ZOCOR [Concomitant]
     Dosage: 40 MG, QD
     Route: 048
  8. TRASYLOL [Suspect]
     Indication: CORONARY ARTERY BYPASS
     Dosage: UNK
  9. TRASYLOL [Suspect]
     Indication: ANEURYSMECTOMY
  10. VASOTEC [Concomitant]
     Dosage: 20 MG, QD
     Route: 048
  11. PROTAMINE SULFATE [Concomitant]
     Dosage: UNK
     Dates: start: 20050623
  12. DARVOCET-N 50 [Concomitant]
     Dosage: 100 MG, AS NEEDED
     Route: 048
  13. HYDROCHLOROTHIAZIDE [Concomitant]
     Dosage: 25 MG, QD
     Route: 048
  14. VASOTEC [ENALAPRILAT] [Concomitant]
  15. TOPROL-XL [Concomitant]
     Dosage: 50 MG, QD
     Route: 048
  16. CELEBREX [Concomitant]
     Dosage: 200 MG, QD
     Route: 048
  17. ACETYLSALICYLIC ACID SRT [Concomitant]
     Dosage: 81 MG, QD
  18. AMINOCAPROIC ACID [Concomitant]
     Dosage: UNK
     Dates: start: 20050623

REACTIONS (7)
  - INJURY [None]
  - RENAL FAILURE ACUTE [None]
  - PAIN [None]
  - RENAL FAILURE [None]
  - UNEVALUABLE EVENT [None]
  - EMOTIONAL DISORDER [None]
  - DEATH [None]
